FAERS Safety Report 8822440 (Version 2)
Quarter: 2012Q4

REPORT INFORMATION
  Report Type: 
  Country: US (occurrence: US)
  Receive Date: 20121003
  Receipt Date: 20121120
  Transmission Date: 20130627
  Serious: No
  Sender: FDA-Public Use
  Company Number: US-ELI_LILLY_AND_COMPANY-US201209008175

PATIENT
  Sex: Female
  Weight: 77 kg

DRUGS (3)
  1. ADCIRCA [Suspect]
     Dosage: 20 mg, unknown
     Route: 048
     Dates: start: 201206, end: 201207
  2. TYVASO [Concomitant]
     Indication: PULMONARY ARTERIAL HYPERTENSION
     Dosage: 0.6 mg/ml
     Route: 055
     Dates: start: 20120829
  3. DIURETICS [Concomitant]

REACTIONS (5)
  - Visual impairment [Recovered/Resolved]
  - Vision blurred [Recovered/Resolved]
  - Myopia [Recovered/Resolved]
  - Asthenia [Recovered/Resolved]
  - Dizziness [Recovered/Resolved]
